FAERS Safety Report 8421767-1 (Version None)
Quarter: 2012Q2

REPORT INFORMATION
  Report Type: 
  Country: None (occurrence: None)
  Receive Date: 20120601
  Receipt Date: 20120517
  Transmission Date: 20120825
  Serious: Yes (Hospitalization)
  Sender: FDA-Public Use
  Company Number: 2012MPI00121

PATIENT
  Age: 19 Year
  Sex: Female

DRUGS (8)
  1. AMOXIL (AMOXICILLIN SODIUM) [Concomitant]
  2. FOLIC ACID [Concomitant]
  3. SEPTRA [Concomitant]
  4. ACYCLOVIR [Concomitant]
  5. ELLESTE-DUET (ESTRADIOL, NORETHISTERONE ACETATE) [Concomitant]
  6. BRENTUXIMAB VEDOTIN (BRENTUXIMAB VEDOTIN) INJECTION [Suspect]
     Indication: HODGKIN'S DISEASE RECURRENT
     Dosage: 1.8 MG/KG, Q21D, INTRAVENOUS
     Route: 042
     Dates: start: 20110523, end: 20111124
  7. CYANOCOBALAMIN [Concomitant]
  8. ADCAL D3 (CALCIUM CARBONATE, COLECALCIFEROL) [Concomitant]

REACTIONS (6)
  - WHITE BLOOD CELL COUNT INCREASED [None]
  - DRUG HYPERSENSITIVITY [None]
  - NEUTROPHIL COUNT INCREASED [None]
  - VULVA CYST [None]
  - TYPE IV HYPERSENSITIVITY REACTION [None]
  - CONSTIPATION [None]
